FAERS Safety Report 6754068-8 (Version None)
Quarter: 2010Q2

REPORT INFORMATION
  Report Type: 
  Country: None (occurrence: None)
  Receive Date: 20100601
  Receipt Date: 20100517
  Transmission Date: 20101027
  Serious: Yes (Death, Hospitalization, Other)
  Sender: FDA-Public Use
  Company Number: 201000478

PATIENT
  Age: 41 Year
  Sex: Female

DRUGS (9)
  1. ERLOTINIB (ERLOTINIB) (TABLET) (ERLOTINIB) [Suspect]
     Indication: GLIOBLASTOMA MULTIFORME
     Dosage: (450 MG,QD),ORAL
     Route: 048
     Dates: start: 20091209, end: 20100113
  2. DASATINIB [Suspect]
     Indication: GLIOBLASTOMA MULTIFORME
     Dosage: (180 MG),ORAL
     Route: 048
     Dates: start: 20091209, end: 20100113
  3. DECADRON [Concomitant]
  4. LOPERAMIDE HYDROCHLORIDE [Concomitant]
  5. LOVENOX [Concomitant]
  6. LEVETIRACETAM [Concomitant]
  7. ONDANSETRON [Concomitant]
  8. TRILEPTAL [Concomitant]
  9. ZANTAC 150 [Concomitant]

REACTIONS (22)
  - ALANINE AMINOTRANSFERASE INCREASED [None]
  - ASPARTATE AMINOTRANSFERASE INCREASED [None]
  - BLOOD CALCIUM DECREASED [None]
  - BLOOD CREATININE INCREASED [None]
  - CARDIO-RESPIRATORY ARREST [None]
  - CONVULSION [None]
  - CYANOSIS [None]
  - DEHYDRATION [None]
  - DIARRHOEA [None]
  - GLIOBLASTOMA MULTIFORME [None]
  - HAEMOGLOBIN DECREASED [None]
  - HYPERKALAEMIA [None]
  - INTERNATIONAL NORMALISED RATIO INCREASED [None]
  - LUNG INFILTRATION [None]
  - MALIGNANT NEOPLASM PROGRESSION [None]
  - MULTI-ORGAN DISORDER [None]
  - MYDRIASIS [None]
  - PLATELET COUNT DECREASED [None]
  - PROTHROMBIN TIME PROLONGED [None]
  - UNRESPONSIVE TO STIMULI [None]
  - WHEEZING [None]
  - WHITE BLOOD CELL COUNT INCREASED [None]
